FAERS Safety Report 14069754 (Version 2)
Quarter: 2017Q4

REPORT INFORMATION
  Report Type: Spontaneous
  Country: CA (occurrence: CA)
  Receive Date: 20171010
  Receipt Date: 20171017
  Transmission Date: 20180321
  Serious: Yes (Hospitalization, Other)
  Sender: FDA-Public Use
  Company Number: CA-AMGEN-CANSP2017151243

PATIENT
  Age: 54 Year
  Sex: Male
  Weight: 85 kg

DRUGS (12)
  1. PROLIA [Suspect]
     Active Substance: DENOSUMAB
     Indication: OSTEOPOROSIS
     Dosage: 60 MG, Q6MO
     Route: 058
  2. FUROSEMIDE. [Concomitant]
     Active Substance: FUROSEMIDE
  3. HYDROMORPHONE [Concomitant]
     Active Substance: HYDROMORPHONE
  4. PERCOCET [Concomitant]
     Active Substance: ACETAMINOPHEN\OXYCODONE HYDROCHLORIDE
  5. SODIUM BICARBONATE. [Concomitant]
     Active Substance: SODIUM BICARBONATE
  6. PANTOPRAZOLE MAGNESIUM [Concomitant]
     Active Substance: PANTOPRAZOLE MAGNESIUM
  7. ZOPICLONE [Concomitant]
     Active Substance: ZOPICLONE
  8. GABAPENTIN. [Concomitant]
     Active Substance: GABAPENTIN
  9. NAPROXEN. [Concomitant]
     Active Substance: NAPROXEN
  10. FERROUS FUMARATE [Concomitant]
     Active Substance: FERROUS FUMARATE
  11. NADOLOL. [Concomitant]
     Active Substance: NADOLOL
  12. TRAZODONE [Concomitant]
     Active Substance: TRAZODONE HYDROCHLORIDE

REACTIONS (4)
  - Urinary tract infection [Recovering/Resolving]
  - Hypocalcaemia [Recovering/Resolving]
  - Gout [Recovering/Resolving]
  - Escherichia bacteraemia [Recovering/Resolving]
